FAERS Safety Report 8045567-X (Version None)
Quarter: 2012Q1

REPORT INFORMATION
  Report Type: 
  Country: None (occurrence: None)
  Receive Date: 20120113
  Receipt Date: 20120110
  Transmission Date: 20120608
  Serious: Yes (Other)
  Sender: FDA-Public Use
  Company Number: US-ROCHE-784508

PATIENT
  Sex: Male
  Weight: 68.1 kg

DRUGS (2)
  1. ACCUTANE [Suspect]
     Indication: ACNE
     Dosage: DOSE: ALTERNATIVELY 2 CAPSULES DAILY AND 1 CAPSULE DAILY
     Route: 048
     Dates: start: 19900116, end: 19900607
  2. ACCUTANE [Suspect]
     Dates: start: 19940107, end: 19940601

REACTIONS (5)
  - EMOTIONAL DISTRESS [None]
  - STRESS [None]
  - INFLAMMATORY BOWEL DISEASE [None]
  - INTESTINAL HAEMORRHAGE [None]
  - COLITIS ULCERATIVE [None]
